FAERS Safety Report 7230842-9 (Version None)
Quarter: 2011Q1

REPORT INFORMATION
  Report Type: 
  Country: None (occurrence: None)
  Receive Date: 20110107
  Receipt Date: 20101229
  Transmission Date: 20110831
  Serious: Yes (Hospitalization)
  Sender: FDA-Public Use
  Company Number: 024675

PATIENT
  Age: 31 Year
  Sex: Female

DRUGS (6)
  1. CALCIUM CARBONATE [Concomitant]
  2. AMITRIPTYLINE HCL [Concomitant]
  3. GABAPENTIN [Concomitant]
  4. ORAMORPH SR [Concomitant]
  5. DICLOFENAC [Concomitant]
  6. LEVETIRACETAM [Suspect]
     Indication: NEURALGIA
     Dosage: (750 MG ORAL)
     Route: 048
     Dates: start: 20100629, end: 20101216

REACTIONS (9)
  - MOUTH ULCERATION [None]
  - BLOOD ALKALINE PHOSPHATASE INCREASED [None]
  - EYELID OEDEMA [None]
  - GAMMA-GLUTAMYLTRANSFERASE INCREASED [None]
  - LIVER FUNCTION TEST ABNORMAL [None]
  - DRUG RASH WITH EOSINOPHILIA AND SYSTEMIC SYMPTOMS [None]
  - ALANINE AMINOTRANSFERASE INCREASED [None]
  - INFLUENZA LIKE ILLNESS [None]
  - ASTHENIA [None]
